FAERS Safety Report 9632228 (Version 2)
Quarter: 2013Q4

REPORT INFORMATION
  Report Type: Spontaneous
  Country: US (occurrence: US)
  Receive Date: 20131018
  Receipt Date: 20131107
  Transmission Date: 20140711
  Serious: No
  Sender: FDA-Public Use
  Company Number: US-TEVA-438609USA

PATIENT
  Sex: Female
  Weight: 88.98 kg

DRUGS (2)
  1. NUVIGIL [Suspect]
     Indication: HYPERSOMNIA
     Dosage: 250 MILLIGRAM DAILY;
     Route: 048
     Dates: start: 20130906, end: 20130926
  2. ADDERALL [Concomitant]

REACTIONS (2)
  - Nausea [Unknown]
  - Headache [Not Recovered/Not Resolved]
